FAERS Safety Report 12658667 (Version 1)
Quarter: 2016Q3

REPORT INFORMATION
  Report Type: Spontaneous
  Country: US (occurrence: None)
  Receive Date: 20160816
  Receipt Date: 20160816
  Transmission Date: 20161109
  Serious: Yes (Life-Threatening, Hospitalization)
  Sender: FDA-Public Use
  Company Number: None

PATIENT
  Age: 78 Year
  Sex: Male
  Weight: 58.9 kg

DRUGS (2)
  1. LITHIUM. [Suspect]
     Active Substance: LITHIUM
     Indication: BIPOLAR I DISORDER
     Route: 048
     Dates: start: 20140417, end: 20150717
  2. LITHIUM. [Suspect]
     Active Substance: LITHIUM
     Route: 048
     Dates: start: 20140417, end: 20150717

REACTIONS (6)
  - Lethargy [None]
  - Diabetes insipidus [None]
  - Confusional state [None]
  - Delirium [None]
  - Cerebrovascular accident [None]
  - Fall [None]

NARRATIVE: CASE EVENT DATE: 20150625
